FAERS Safety Report 11630737 (Version 2)
Quarter: 2015Q4

REPORT INFORMATION
  Report Type: Report from Study
  Country: NL (occurrence: NL)
  Receive Date: 20151014
  Receipt Date: 20151222
  Transmission Date: 20160304
  Serious: Yes (Hospitalization)
  Sender: FDA-Public Use
  Company Number: NL-ABBVIE-15P-114-1477362-00

PATIENT
  Sex: Female

DRUGS (1)
  1. DUODOPA [Suspect]
     Active Substance: CARBIDOPA\LEVODOPA
     Indication: PARKINSON^S DISEASE
     Dosage: 20/5MG/ML. INTESTINAL. MD:7.0 CD:2.6 ED:2.0 NO ND
     Route: 050
     Dates: start: 20121119

REACTIONS (3)
  - Vertebral foraminal stenosis [Unknown]
  - Scoliosis [Unknown]
  - Lumbar spinal stenosis [Unknown]
